FAERS Safety Report 5951935-X (Version None)
Quarter: 2008Q4

REPORT INFORMATION
  Report Type: 
  Country: None (occurrence: None)
  Receive Date: 20081113
  Receipt Date: 20080804
  Transmission Date: 20090506
  Serious: No
  Sender: FDA-Public Use
  Company Number: A0632295A

PATIENT
  Age: 82 Year
  Sex: Male

DRUGS (8)
  1. COREG [Suspect]
     Dosage: 3.125MG PER DAY
     Route: 048
     Dates: start: 20060622
  2. PLENDIL [Concomitant]
  3. SYNTHROID [Concomitant]
  4. IMODIUM A-D [Concomitant]
  5. ANTI-CHOLESTEROL MEDICATION [Concomitant]
  6. MULTIVITAMIN [Concomitant]
  7. CENTRUM SILVER [Concomitant]
  8. GARLIC TABLETS [Concomitant]

REACTIONS (2)
  - DRY EYE [None]
  - VISION BLURRED [None]
